FAERS Safety Report 4869878-1 (Version None)
Quarter: 2005Q4

REPORT INFORMATION
  Report Type: 
  Country: None (occurrence: None)
  Receive Date: 20051230
  Receipt Date: 20051221
  Transmission Date: 20060501
  Serious: Yes (Hospitalization)
  Sender: FDA-Public Use
  Company Number: FR-MERCK-0512FRA00084

PATIENT
  Age: 74 Year
  Sex: Female

DRUGS (5)
  1. FOSAMAX [Suspect]
     Indication: OSTEOPOROSIS
     Route: 048
     Dates: start: 20050806, end: 20050820
  2. CALCIUM CARBONATE [Concomitant]
     Route: 048
  3. BROMAZEPAM [Concomitant]
     Indication: DEPRESSION
     Route: 048
  4. CHOLESTYRAMINE RESIN [Concomitant]
     Indication: HYPERCHOLESTEROLAEMIA
     Route: 048
  5. PROMESTRIENE [Concomitant]
     Route: 065

REACTIONS (4)
  - CHILLS [None]
  - HEADACHE [None]
  - HYPERTENSION [None]
  - PYREXIA [None]
